FAERS Safety Report 4682254-X (Version None)
Quarter: 2005Q2

REPORT INFORMATION
  Report Type: 
  Country: None (occurrence: None)
  Receive Date: 20050602
  Receipt Date: 20050602
  Transmission Date: 20051028
  Serious: Yes (Death)
  Sender: FDA-Public Use
  Company Number: None

PATIENT
  Sex: Male
  Weight: 86 kg

DRUGS (1)
  1. STEM CELL TRANSPLANT TISSUE [Suspect]
     Dates: start: 20030623

REACTIONS (14)
  - ANAEMIA [None]
  - COMPLICATIONS OF TRANSPLANT SURGERY [None]
  - DEEP VEIN THROMBOSIS [None]
  - DIABETES MELLITUS [None]
  - GRAFT VERSUS HOST DISEASE [None]
  - HEPATIC FAILURE [None]
  - HYDRONEPHROSIS [None]
  - HYPOTENSION [None]
  - PERICARDIAL HAEMORRHAGE [None]
  - PERICARDITIS CONSTRICTIVE [None]
  - PLEURAL EFFUSION [None]
  - PULMONARY EMBOLISM [None]
  - SPLENIC INFARCTION [None]
  - THROMBOCYTOPENIA [None]
